FAERS Safety Report 6431827-2 (Version None)
Quarter: 2009Q4

REPORT INFORMATION
  Report Type: 
  Country: None (occurrence: None)
  Receive Date: 20091104
  Receipt Date: 20091027
  Transmission Date: 20100525
  Serious: Yes (Other)
  Sender: FDA-Public Use
  Company Number: TPH-00226

PATIENT
  Age: 3 Year
  Sex: Female

DRUGS (1)
  1. TRIQULAR [Suspect]
     Indication: CONTRACEPTION
     Dosage: TRANSPLACENTAL
     Route: 064
     Dates: start: 20091022

REACTIONS (3)
  - CAESAREAN SECTION [None]
  - LIMB DEFORMITY [None]
  - MATERNAL DRUGS AFFECTING FOETUS [None]
